FAERS Safety Report 5142926-X (Version None)
Quarter: 2006Q4

REPORT INFORMATION
  Report Type: 
  Country: None (occurrence: None)
  Receive Date: 20061030
  Receipt Date: 20061017
  Transmission Date: 20070319
  Serious: Yes (Life-Threatening)
  Sender: FDA-Public Use
  Company Number: 2006127880

PATIENT
  Age: 66 Year
  Sex: Male

DRUGS (5)
  1. SULPERAZON (SULBACTAM, CEFOPERAZONE) [Suspect]
  2. ZYVOX [Suspect]
  3. CIPROFLOXACIN [Concomitant]
  4. CLINDAMYCIN (CLINDAMYCIN) [Concomitant]
  5. OXACILLIN [Concomitant]

REACTIONS (1)
  - ACIDOSIS [None]
